FAERS Safety Report 5318907-X (Version None)
Quarter: 2007Q1

REPORT INFORMATION
  Report Type: 
  Country: None (occurrence: None)
  Receive Date: 20070201
  Receipt Date: 20061204
  Transmission Date: 20070707
  Serious: No
  Sender: FDA-Public Use
  Company Number: VNL_0327_2006

PATIENT
  Age: 49 Year
  Sex: Male
  Weight: 107.0489 kg

DRUGS (7)
  1. APOKYN [Suspect]
     Indication: PARKINSON'S DISEASE
     Dosage: VAR VARIABLE SC
     Route: 058
     Dates: start: 20061020, end: 20061223
  2. ZOFRAN [Suspect]
     Indication: ANTIEMETIC SUPPORTIVE CARE
     Dosage: 4 MG
  3. AMANTADINE HCL [Concomitant]
  4. OXYCONTIN [Concomitant]
  5. EFFEXOR [Concomitant]
  6. FLEXERIL [Concomitant]
  7. KLONOPIN [Concomitant]

REACTIONS (2)
  - DIZZINESS [None]
  - NAUSEA [None]
